FAERS Safety Report 12931463 (Version 1)
Quarter: 2016Q4

REPORT INFORMATION
  Report Type: Spontaneous
  Country: US (occurrence: US)
  Receive Date: 20161110
  Receipt Date: 20161110
  Transmission Date: 20170207
  Serious: No
  Sender: FDA-Public Use
  Company Number: US-ELI_LILLY_AND_COMPANY-US201608001914

PATIENT
  Age: 38 Year
  Sex: Female

DRUGS (2)
  1. CYMBALTA [Suspect]
     Active Substance: DULOXETINE HYDROCHLORIDE
     Indication: PRODUCT USED FOR UNKNOWN INDICATION
     Dosage: UNK, UNKNOWN
     Route: 065
     Dates: start: 20130330, end: 201312
  2. LYRICA [Concomitant]
     Active Substance: PREGABALIN
     Indication: PRODUCT USED FOR UNKNOWN INDICATION
     Dosage: UNK, UNKNOWN
     Route: 065

REACTIONS (21)
  - Fatigue [Unknown]
  - Sensory disturbance [Unknown]
  - Migraine [Unknown]
  - Dysphoria [Unknown]
  - Nausea [Unknown]
  - Paraesthesia [Unknown]
  - Affect lability [Unknown]
  - Agitation [Unknown]
  - Headache [Unknown]
  - Drug withdrawal syndrome [Unknown]
  - Irritability [Unknown]
  - Anxiety [Unknown]
  - Dizziness [Unknown]
  - Lethargy [Unknown]
  - Vomiting [Unknown]
  - Diarrhoea [Unknown]
  - Tinnitus [Unknown]
  - Disturbance in attention [Recovered/Resolved]
  - Anger [Unknown]
  - Vertigo [Unknown]
  - Insomnia [Unknown]

NARRATIVE: CASE EVENT DATE: 201410
